FAERS Safety Report 9925544 (Version 1)
Quarter: 2014Q1

REPORT INFORMATION
  Report Type: Spontaneous
  Country: US (occurrence: None)
  Receive Date: 20140224
  Receipt Date: 20140224
  Transmission Date: 20141002
  Serious: Yes (Death)
  Sender: FDA-Public Use
  Company Number: NL01PV14.35175

PATIENT
  Age: 53 Year
  Sex: Male

DRUGS (5)
  1. UNKNOWN(ZOLPIDEM) TABLET [Suspect]
  2. DIAZEPAM (DIAZEPAM) [Suspect]
  3. ACETAMINOPHEN W/HYDROCODONE (HYDROCODONE, PARACETAMOL) [Suspect]
  4. FENTANYL (FENTANYL) [Suspect]
  5. HYDROMORPHONE (HYDROMORPHONE) [Suspect]

REACTIONS (5)
  - Drug abuse [None]
  - Exposure via ingestion [None]
  - Exposure via direct contact [None]
  - Cardiac arrest [None]
  - Respiratory arrest [None]
